FAERS Safety Report 9806593 (Version 2)
Quarter: 2014Q1

REPORT INFORMATION
  Report Type: Spontaneous
  Country: CA (occurrence: CA)
  Receive Date: 20140109
  Receipt Date: 20140120
  Transmission Date: 20141002
  Serious: Yes (Life-Threatening, Hospitalization, Other)
  Sender: FDA-Public Use
  Company Number: CA-ABBVIE-14P-028-1187939-00

PATIENT
  Age: 45 Year
  Sex: Female

DRUGS (7)
  1. SYNTHROID [Suspect]
     Indication: THYROID DISORDER
     Route: 048
     Dates: start: 2000
  2. SYNTHROID [Suspect]
     Route: 048
     Dates: start: 201305, end: 201311
  3. SYNTHROID [Suspect]
     Dosage: 1/2
  4. SYNTHROID [Suspect]
     Dates: start: 201311
  5. SYNTHROID [Suspect]
     Route: 048
  6. UNKNOWN MEDICATIONS [Suspect]
     Indication: PRODUCT USED FOR UNKNOWN INDICATION
  7. OTHER 12 MEDICATIONS [Concomitant]
     Indication: PRODUCT USED FOR UNKNOWN INDICATION

REACTIONS (18)
  - Paralysis [Unknown]
  - Angina pectoris [Unknown]
  - Cardiac disorder [Unknown]
  - Blood glucose abnormal [Unknown]
  - Dysgeusia [Unknown]
  - Dysgeusia [Unknown]
  - Palpitations [Unknown]
  - Asthenia [Unknown]
  - Product taste abnormal [Unknown]
  - Myalgia [Unknown]
  - Swelling [Unknown]
  - Dyspnoea [Unknown]
  - Product physical issue [Unknown]
  - Product contamination [Unknown]
  - Blood insulin abnormal [Unknown]
  - Cardiac disorder [Unknown]
  - Nervous system disorder [Unknown]
  - Product quality issue [Unknown]
